FAERS Safety Report 25989206 (Version 1)
Quarter: 2025Q4

REPORT INFORMATION
  Report Type: Other
  Country: EU (occurrence: EU)
  Receive Date: 20251103
  Receipt Date: 20251103
  Transmission Date: 20260117
  Serious: Yes (Life-Threatening, Hospitalization)
  Sender: Atnahs Healthcare
  Company Number: None

PATIENT

DRUGS (8)
  1. DIAZEPAM [Suspect]
     Active Substance: DIAZEPAM
     Indication: Alcohol withdrawal syndrome
     Dosage: 10 MG JUSQU^? 5 FOIS PAR JOUR
     Route: 048
     Dates: start: 202509, end: 20250911
  2. COCAINE [Suspect]
     Active Substance: COCAINE
     Indication: Product used for unknown indication
     Dosage: INCONNUE
     Dates: end: 20250911
  3. CETIRIZINE [Suspect]
     Active Substance: CETIRIZINE HYDROCHLORIDE
     Indication: Product used for unknown indication
     Dosage: INCONNUE
     Route: 065
     Dates: start: 202509, end: 20250911
  4. CANNABIS SATIVA SUBSP. INDICA TOP [Suspect]
     Active Substance: CANNABIS SATIVA SUBSP. INDICA TOP
     Indication: Product used for unknown indication
     Dosage: INCONNUE
     Dates: end: 20250911
  5. NOSCAPINE [Suspect]
     Active Substance: NOSCAPINE
     Indication: Product used for unknown indication
     Dosage: INCONNUE
     Route: 048
     Dates: start: 202509, end: 20250911
  6. LOXAPINE [Suspect]
     Active Substance: LOXAPINE
     Indication: Product used for unknown indication
     Dosage: 50 MG
     Route: 048
     Dates: end: 20250911
  7. PAROXETINE [Suspect]
     Active Substance: PAROXETINE
     Indication: Depression
     Dosage: 40 MG, DAILY
     Route: 048
     Dates: end: 20250911
  8. ALCOHOL [Suspect]
     Active Substance: ALCOHOL
     Indication: Product used for unknown indication
     Dosage: UNK
     Route: 065

REACTIONS (11)
  - Drug abuse [Recovered/Resolved]
  - Somnolence [Recovered/Resolved]
  - Bradypnoea [Recovered/Resolved]
  - Malaise [Recovered/Resolved]
  - Tachycardia [Recovered/Resolved]
  - Hepatitis acute [Recovered/Resolved]
  - Rhabdomyolysis [Recovered/Resolved]
  - Multisystem inflammatory syndrome [Recovered/Resolved]
  - Miosis [Recovered/Resolved]
  - Hyperthermia [Recovered/Resolved]
  - Central nervous system necrosis [Not Recovered/Not Resolved]

NARRATIVE: CASE EVENT DATE: 20250911
